FAERS Safety Report 4898573-8 (Version None)
Quarter: 2006Q1

REPORT INFORMATION
  Report Type: 
  Country: None (occurrence: None)
  Receive Date: 20060130
  Receipt Date: 20060119
  Transmission Date: 20060701
  Serious: Yes (Hospitalization)
  Sender: FDA-Public Use
  Company Number: 2006-01-0191

PATIENT
  Age: 55 Year
  Sex: Male
  Weight: 55 kg

DRUGS (6)
  1. REBETOL [Suspect]
     Indication: HEPATITIS C
     Dosage: 600 MG ORAL
     Route: 048
     Dates: start: 20050930
  2. INTRON A [Suspect]
     Indication: HEPATITIS C
     Dosage: 6 MIU QD-TIW INTRAMUSCULAR; 6 MIU TIW INTRAMUSCULAR
     Route: 030
     Dates: start: 20050930, end: 20051013
  3. INTRON A [Suspect]
     Indication: HEPATITIS C
     Dosage: 6 MIU QD-TIW INTRAMUSCULAR; 6 MIU TIW INTRAMUSCULAR
     Route: 030
     Dates: start: 20050930, end: 20060111
  4. INTRON A [Suspect]
     Indication: HEPATITIS C
     Dosage: 6 MIU QD-TIW INTRAMUSCULAR; 6 MIU TIW INTRAMUSCULAR
     Route: 030
     Dates: start: 20051014, end: 20060111
  5. HALCION [Concomitant]
  6. ZOLPIDEM TARTRATE TABLETS [Concomitant]

REACTIONS (4)
  - ASTHENIA [None]
  - CEREBRAL INFARCTION [None]
  - FALL [None]
  - WHEELCHAIR USER [None]
